FAERS Safety Report 5304634-1 (Version None)
Quarter: 2007Q2

REPORT INFORMATION
  Report Type: 
  Country: None (occurrence: None)
  Receive Date: 20070423
  Receipt Date: 20070413
  Transmission Date: 20071010
  Serious: Yes (Hospitalization, Other)
  Sender: FDA-Public Use
  Company Number: BW-GLAXOSMITHKLINE-B0467360A

PATIENT
  Age: 58 Year
  Sex: Male

DRUGS (3)
  1. AVANDIA [Suspect]
  2. INSULIN [Concomitant]
  3. METFORMIN HCL [Concomitant]

REACTIONS (3)
  - CARDIAC FAILURE [None]
  - DIABETIC COMPLICATION [None]
  - DYSPNOEA [None]
